FAERS Safety Report 13265084 (Version 1)
Quarter: 2017Q1

REPORT INFORMATION
  Report Type: Spontaneous
  Country: BR (occurrence: BR)
  Receive Date: 20170223
  Receipt Date: 20170223
  Transmission Date: 20170428
  Serious: Yes (Other)
  Sender: FDA-Public Use
  Company Number: BR-GLAXOSMITHKLINE-BR2017GSK023719

PATIENT
  Sex: Female
  Weight: 61 kg

DRUGS (2)
  1. BETA BLOCKER [Concomitant]
     Active Substance: UNSPECIFIED INGREDIENT
     Indication: INFARCTION
  2. ZINNAT [Suspect]
     Active Substance: CEFUROXIME AXETIL
     Indication: PNEUMONIA
     Dosage: 1 DF, BID (TABLET)
     Route: 048
     Dates: start: 20170110

REACTIONS (5)
  - Hypersensitivity [Unknown]
  - Pneumonia [Recovered/Resolved]
  - Laryngospasm [Recovered/Resolved]
  - Dysphagia [Unknown]
  - Rash [Not Recovered/Not Resolved]
